FAERS Safety Report 4965823-9 (Version None)
Quarter: 2006Q2

REPORT INFORMATION
  Report Type: 
  Country: None (occurrence: None)
  Receive Date: 20060406
  Receipt Date: 20060406
  Transmission Date: 20061013
  Serious: Yes (Death, Life-Threatening)
  Sender: FDA-Public Use
  Company Number: None

PATIENT
  Age: 57 Year
  Sex: Female

DRUGS (9)
  1. AVASTIN [Suspect]
     Indication: BREAST CANCER METASTATIC
     Dosage: 459 MG Q 14 DAYS IV  (5 CYCLES)
     Route: 042
     Dates: start: 20050928, end: 20060221
  2. PACLITAXEL [Suspect]
     Indication: BREAST CANCER METASTATIC
     Dosage: 126 MG Q 14 DAYS IV  5 CYCLES
     Route: 042
     Dates: start: 20050928, end: 20060221
  3. ONDANSETRON [Concomitant]
  4. DEXAMETHASONE TAB [Concomitant]
  5. RESTORIL [Concomitant]
  6. XANAX [Concomitant]
  7. DIPHENHYDRAMINE HCL [Concomitant]
  8. DEXAMETHASONE TAB [Concomitant]
  9. FAMOTIDINE [Concomitant]

REACTIONS (8)
  - ASTHENIA [None]
  - BRAIN HERNIATION [None]
  - BRAIN MASS [None]
  - GRAND MAL CONVULSION [None]
  - HAEMORRHAGE INTRACRANIAL [None]
  - HYDROCEPHALUS [None]
  - MENTAL STATUS CHANGES [None]
  - METASTASES TO CENTRAL NERVOUS SYSTEM [None]
